FAERS Safety Report 8606014-X (Version None)
Quarter: 2012Q3

REPORT INFORMATION
  Report Type: 
  Country: None (occurrence: None)
  Receive Date: 20120820
  Receipt Date: 20120815
  Transmission Date: 20120928
  Serious: Yes (Other)
  Sender: FDA-Public Use
  Company Number: GB-ROCHE-1090875

PATIENT
  Sex: Female
  Weight: 74.4 kg

DRUGS (4)
  1. ACETAMINOPHEN AND CODEINE PHOSPHATE [Concomitant]
     Indication: MUSCULOSKELETAL PAIN
     Dates: start: 20120419
  2. ERIBULIN [Suspect]
     Indication: BREAST CANCER METASTATIC
     Dosage: ON 12/JUL/2012 MOST RECENT DOSE OF 2.2 MG PRIOR TO EVENT WAS TAKEN
     Route: 042
     Dates: start: 20120525
  3. HERCEPTIN [Suspect]
     Indication: BREAST CANCER METASTATIC
     Dosage: ON 5/JUL/2012 MOST RECENT DOSE OF 430.5 MG PRIOR TO EVENT WAS TAKEN
     Route: 042
     Dates: start: 20120525
  4. IBUPROFEN [Concomitant]
     Indication: HEADACHE
     Dates: start: 20120527

REACTIONS (1)
  - MIGRAINE [None]
